FAERS Safety Report 4892276-1 (Version None)
Quarter: 2006Q1

REPORT INFORMATION
  Report Type: 
  Country: None (occurrence: None)
  Receive Date: 20060126
  Receipt Date: 20051107
  Transmission Date: 20060701
  Serious: Yes (Hospitalization)
  Sender: FDA-Public Use
  Company Number: US-AMGEN-US156989

PATIENT
  Sex: Female
  Weight: 56 kg

DRUGS (5)
  1. ENBREL [Suspect]
     Indication: PSORIATIC ARTHROPATHY
     Route: 058
     Dates: start: 20050809, end: 20051010
  2. METHOTREXATE [Concomitant]
     Indication: PSORIATIC ARTHROPATHY
     Route: 048
     Dates: start: 20000101
  3. SYNTHROID [Concomitant]
     Route: 048
     Dates: start: 20030725
  4. MOBIC [Concomitant]
     Indication: PSORIATIC ARTHROPATHY
     Route: 048
     Dates: start: 20050610, end: 20051027
  5. PREVACID [Concomitant]
     Route: 048
     Dates: start: 20050610

REACTIONS (22)
  - ANGIONEUROTIC OEDEMA [None]
  - ARTHRALGIA [None]
  - ASTHENIA [None]
  - CONDITION AGGRAVATED [None]
  - DERMOGRAPHISM [None]
  - DRUG INEFFECTIVE [None]
  - HYPERHIDROSIS [None]
  - INJECTION SITE ERYTHEMA [None]
  - INJECTION SITE REACTION [None]
  - INJECTION SITE SWELLING [None]
  - INJECTION SITE WARMTH [None]
  - JOINT STIFFNESS [None]
  - JUVENILE ARTHRITIS [None]
  - KOEBNER PHENOMENON [None]
  - LYMPHADENOPATHY [None]
  - PAIN [None]
  - PHARYNGOLARYNGEAL PAIN [None]
  - POLYARTHRITIS [None]
  - PSORIASIS [None]
  - PSORIATIC ARTHROPATHY [None]
  - PYREXIA [None]
  - RASH PRURITIC [None]
